FAERS Safety Report 17750241 (Version 1)
Quarter: 2020Q2

REPORT INFORMATION
  Report Type: Spontaneous
  Country: US (occurrence: US)
  Receive Date: 20200505
  Receipt Date: 20200505
  Transmission Date: 20200714
  Serious: No
  Sender: FDA-Public Use
  Company Number: None

PATIENT
  Age: 57 Year
  Sex: Female

DRUGS (1)
  1. RASUVO [Suspect]
     Active Substance: METHOTREXATE SODIUM
     Indication: RHEUMATOID ARTHRITIS
     Dosage: ?          OTHER STRENGTH:17.5/.35M;?
     Route: 058
     Dates: start: 202004

REACTIONS (3)
  - COVID-19 [None]
  - Dyspnoea [None]
  - Contusion [None]

NARRATIVE: CASE EVENT DATE: 202004
